FAERS Safety Report 4926094-2 (Version None)
Quarter: 2006Q1

REPORT INFORMATION
  Report Type: 
  Country: None (occurrence: None)
  Receive Date: 20060228
  Receipt Date: 20050817
  Transmission Date: 20060701
  Serious: No
  Sender: FDA-Public Use
  Company Number: US-GLAXOSMITHKLINE-A0570612A

PATIENT
  Age: 60 Year
  Sex: Female

DRUGS (6)
  1. LAMICTAL [Suspect]
     Indication: BIPOLAR DISORDER
     Dosage: 200MG PER DAY
     Route: 048
  2. MEVACOR [Suspect]
     Indication: BLOOD CHOLESTEROL INCREASED
     Route: 048
  3. ABILIFY [Concomitant]
  4. ZOLOFT [Concomitant]
  5. DESIPRAMINE HCL [Concomitant]
  6. ATIVAN [Concomitant]

REACTIONS (1)
  - ALOPECIA [None]
